FAERS Safety Report 9735567 (Version 1)
Quarter: 2013Q4

REPORT INFORMATION
  Report Type: Spontaneous
  Country: US (occurrence: US)
  Receive Date: 20131206
  Receipt Date: 20131206
  Transmission Date: 20140711
  Serious: No
  Sender: FDA-Public Use
  Company Number: US-GILEAD-2009-0023944

PATIENT
  Sex: Female

DRUGS (18)
  1. LETAIRIS [Suspect]
     Indication: PULMONARY ARTERIAL HYPERTENSION
     Route: 048
     Dates: start: 20090807, end: 20090824
  2. DARVOCET N [Concomitant]
  3. METFORMIN [Concomitant]
  4. LANTUS [Concomitant]
  5. LASIX [Concomitant]
  6. FEMARA [Concomitant]
  7. DILTIAZEM CD [Concomitant]
  8. BONIVA [Concomitant]
  9. CALCIUM [Concomitant]
  10. AZATHIOPRINE [Concomitant]
  11. ATACAND [Concomitant]
  12. ASPIRIN [Concomitant]
  13. ZANTAC [Concomitant]
  14. TORADOL [Concomitant]
  15. SOMA [Concomitant]
  16. SIMVASTATIN [Concomitant]
  17. PAROXETINE [Concomitant]
  18. NEXIUM [Concomitant]

REACTIONS (2)
  - Dyspnoea [Unknown]
  - Swelling [Unknown]
